FAERS Safety Report 18158087 (Version 44)
Quarter: 2025Q2

REPORT INFORMATION
  Report Type: Report from Study
  Country: US (occurrence: US)
  Receive Date: 20200817
  Receipt Date: 20250418
  Transmission Date: 20250716
  Serious: Yes (Other)
  Sender: TAKEDA
  Company Number: US-SHIRE-US202026115

PATIENT
  Sex: Female
  Weight: 57.143 kg

DRUGS (27)
  1. HUMAN IMMUNOGLOBULIN G [Suspect]
     Active Substance: HUMAN IMMUNOGLOBULIN G
     Indication: Immunodeficiency common variable
     Dosage: 10 GRAM, 1/WEEK
     Dates: start: 20170512
  2. HUMAN IMMUNOGLOBULIN G [Suspect]
     Active Substance: HUMAN IMMUNOGLOBULIN G
     Dosage: 10 GRAM, 1/WEEK
     Dates: start: 20170513
  3. HUMAN IMMUNOGLOBULIN G [Suspect]
     Active Substance: HUMAN IMMUNOGLOBULIN G
     Dosage: 10 GRAM, 1/WEEK
     Dates: start: 20180518
  4. HUMAN IMMUNOGLOBULIN G [Suspect]
     Active Substance: HUMAN IMMUNOGLOBULIN G
     Dosage: 10 GRAM, 1/WEEK
  5. COVID-19 VACCINE NOS [Suspect]
     Active Substance: COVID-19 VACCINE
     Indication: COVID-19 immunisation
  6. DIPHENHYDRAMINE [Concomitant]
     Active Substance: DIPHENHYDRAMINE
     Indication: Product used for unknown indication
  7. XANAX [Concomitant]
     Active Substance: ALPRAZOLAM
     Indication: Product used for unknown indication
  8. PRADAXA [Concomitant]
     Active Substance: DABIGATRAN ETEXILATE MESYLATE
     Indication: Atrial fibrillation
  9. EPINEPHRINE [Concomitant]
     Active Substance: EPINEPHRINE
     Indication: Product used for unknown indication
  10. CALCIUM\VITAMIN D [Concomitant]
     Active Substance: CALCIUM\VITAMIN D
  11. Iodine tincure [Concomitant]
     Indication: Product used for unknown indication
  12. VITAMIN E [Concomitant]
     Active Substance: .ALPHA.-TOCOPHEROL
     Indication: Product used for unknown indication
  13. SOTALOL [Concomitant]
     Active Substance: SOTALOL
     Indication: Product used for unknown indication
  14. ACETAMINOPHEN [Concomitant]
     Active Substance: ACETAMINOPHEN
     Indication: Product used for unknown indication
  15. FLAXSEED [Concomitant]
     Active Substance: FLAX SEED
     Indication: Product used for unknown indication
  16. FISH OIL [Concomitant]
     Active Substance: FISH OIL
     Indication: Product used for unknown indication
  17. LIDOCAINE [Concomitant]
     Active Substance: LIDOCAINE
     Indication: Product used for unknown indication
  18. CVS coenzyme q 10 [Concomitant]
  19. VITAMIN C [Concomitant]
     Active Substance: ASCORBIC ACID
     Indication: Product used for unknown indication
  20. Coq [Concomitant]
  21. VITAMIN B [Concomitant]
     Active Substance: VITAMIN B
     Indication: Product used for unknown indication
  22. MONUROL [Concomitant]
     Active Substance: FOSFOMYCIN TROMETHAMINE
     Indication: Product used for unknown indication
  23. TOVIAZ [Concomitant]
     Active Substance: FESOTERODINE FUMARATE
     Indication: Product used for unknown indication
  24. ASPIRIN [Concomitant]
     Active Substance: ASPIRIN
     Indication: Product used for unknown indication
  25. Omega [Concomitant]
  26. VITAMIN B COMPLEX [Concomitant]
     Active Substance: CYANOCOBALAMIN\DEXPANTHENOL\NIACINAMIDE\PYRIDOXINE HYDROCHLORIDE\RIBOFLAVIN 5^-PHOSPHATE SODIUM\THIA
  27. DIPHENHYDRAMINE HYDROCHLORIDE [Concomitant]
     Active Substance: DIPHENHYDRAMINE HYDROCHLORIDE

REACTIONS (49)
  - Urethral obstruction [Unknown]
  - Cystocele [Unknown]
  - Skin cancer [Unknown]
  - Atrial fibrillation [Unknown]
  - Suicidal ideation [Unknown]
  - COVID-19 [Unknown]
  - Obstruction [Unknown]
  - Infected neoplasm [Unknown]
  - Localised infection [Unknown]
  - Viral infection [Unknown]
  - Gastrointestinal viral infection [Unknown]
  - Seasonal allergy [Unknown]
  - Stress [Unknown]
  - Procedural pain [Unknown]
  - Cystitis [Unknown]
  - Post procedural infection [Unknown]
  - Postoperative wound infection [Unknown]
  - Skin reaction [Unknown]
  - Urinary tract infection [Unknown]
  - Illness [Unknown]
  - Skin discolouration [Unknown]
  - Varicose vein [Unknown]
  - Respiratory tract congestion [Unknown]
  - Eye infection [Unknown]
  - Concussion [Not Recovered/Not Resolved]
  - Arthropathy [Unknown]
  - Face injury [Unknown]
  - Gastroenteritis viral [Unknown]
  - Infusion site discharge [Unknown]
  - Aura [Unknown]
  - Inability to afford medication [Unknown]
  - Multiple allergies [Unknown]
  - Eye allergy [Unknown]
  - Rhinitis allergic [Unknown]
  - Gastrointestinal infection [Unknown]
  - Gastrointestinal disorder [Unknown]
  - Product dose omission issue [Unknown]
  - Inappropriate schedule of product administration [Unknown]
  - Feeling abnormal [Unknown]
  - Infusion site erythema [Recovered/Resolved]
  - Rhinorrhoea [Unknown]
  - Chest pain [Unknown]
  - Migraine [Not Recovered/Not Resolved]
  - Rash [Unknown]
  - Eye pain [Unknown]
  - Nausea [Unknown]
  - Dizziness [Unknown]
  - Urticaria [Unknown]
  - Headache [Unknown]
